FAERS Safety Report 24103998 (Version 3)
Quarter: 2024Q3

REPORT INFORMATION
  Report Type: Spontaneous
  Country: DE (occurrence: DE)
  Receive Date: 20240717
  Receipt Date: 20240902
  Transmission Date: 20241016
  Serious: Yes (Other)
  Sender: BRISTOL MYERS SQUIBB
  Company Number: DE-BRISTOL-MYERS SQUIBB COMPANY-2024-112122

PATIENT
  Age: 82 Year
  Sex: Male
  Weight: 67 kg

DRUGS (3)
  1. ELIQUIS [Suspect]
     Active Substance: APIXABAN
     Indication: Atrial fibrillation
     Dates: start: 202106
  2. VYNDAQEL [TAFAMIDIS] [Concomitant]
     Indication: Amyloidosis
  3. AMIODARONE [Concomitant]
     Active Substance: AMIODARONE
     Indication: Arrhythmia

REACTIONS (4)
  - Cataract [Recovered/Resolved]
  - Product dose omission in error [Unknown]
  - Haemorrhagic diathesis [Recovered/Resolved]
  - Increased tendency to bruise [Recovered/Resolved]
